FAERS Safety Report 5838252-3 (Version None)
Quarter: 2008Q3

REPORT INFORMATION
  Report Type: 
  Country: None (occurrence: None)
  Receive Date: 20080808
  Receipt Date: 20080801
  Transmission Date: 20090109
  Serious: Yes (Life-Threatening, Hospitalization)
  Sender: FDA-Public Use
  Company Number: BR-AVENTIS-200620715GDDC

PATIENT
  Age: 50 Year
  Sex: Female

DRUGS (3)
  1. DOCETAXEL [Suspect]
     Route: 042
     Dates: start: 20060926, end: 20060926
  2. BEVACIZUMAB [Suspect]
     Route: 042
     Dates: start: 20060926, end: 20061004
  3. POLARAMINE                         /00043702/ [Concomitant]
     Dates: start: 20060930, end: 20061003

REACTIONS (6)
  - BLOOD PRESSURE INCREASED [None]
  - FEBRILE NEUTROPENIA [None]
  - HYPERTENSIVE CRISIS [None]
  - MUCOSAL INFLAMMATION [None]
  - ODYNOPHAGIA [None]
  - SKIN LESION [None]
